FAERS Safety Report 9314018 (Version 1)
Quarter: 2013Q2

REPORT INFORMATION
  Report Type: Spontaneous
  Country: US (occurrence: None)
  Receive Date: 20130524
  Receipt Date: 20130524
  Transmission Date: 20140414
  Serious: Yes (Disabling, Other)
  Sender: FDA-Public Use
  Company Number: None

PATIENT
  Age: 12 Year
  Sex: Male
  Weight: 36.29 kg

DRUGS (2)
  1. ADDERALL XR [Suspect]
     Route: 048
  2. FOCALIN [Suspect]
     Route: 048

REACTIONS (5)
  - Feeling abnormal [None]
  - Weight decreased [None]
  - Insomnia [None]
  - Anger [None]
  - Aphagia [None]
